FAERS Safety Report 6877463-5 (Version None)
Quarter: 2010Q2

REPORT INFORMATION
  Report Type: 
  Country: None (occurrence: None)
  Receive Date: 20100616
  Receipt Date: 20100504
  Transmission Date: 20101027
  Serious: No
  Sender: FDA-Public Use
  Company Number: DSA_43112_2010

PATIENT
  Sex: Female

DRUGS (5)
  1. XENAZINE [Suspect]
     Indication: HUNTINGTON'S CHOREA
     Dosage: 25 MG QID ORAL, 50 MG QD, ONE-HALF OF 25 MG TABLET 4 TIMES/DAY ORAL, DF ORAL
     Route: 048
     Dates: start: 20100315, end: 20100421
  2. XENAZINE [Suspect]
     Indication: HUNTINGTON'S CHOREA
     Dosage: 25 MG QID ORAL, 50 MG QD, ONE-HALF OF 25 MG TABLET 4 TIMES/DAY ORAL, DF ORAL
     Route: 048
     Dates: start: 20100421, end: 20100501
  3. XENAZINE [Suspect]
     Indication: HUNTINGTON'S CHOREA
     Dosage: 25 MG QID ORAL, 50 MG QD, ONE-HALF OF 25 MG TABLET 4 TIMES/DAY ORAL, DF ORAL
     Route: 048
     Dates: start: 20100501
  4. LEVOTHYROXINE SODIUM [Concomitant]
  5. LORAZEPAM [Concomitant]

REACTIONS (2)
  - ASTHENIA [None]
  - SOMNOLENCE [None]
